FAERS Safety Report 8900910 (Version 2)
Quarter: 2013Q1

REPORT INFORMATION
  Report Type: Spontaneous
  Country: US (occurrence: US)
  Receive Date: 20121109
  Receipt Date: 20130108
  Transmission Date: 20140127
  Serious: Yes (Other)
  Sender: FDA-Public Use
  Company Number: US-PERRIGO-12US009501

PATIENT
  Age: 1 Year
  Sex: Male
  Weight: 13.15 kg

DRUGS (2)
  1. LICE COMBO 866/9K1/0N8 PK 173 [Suspect]
     Indication: LICE INFESTATION
     Dosage: ONE APPLICATION, SINGLE
     Route: 061
     Dates: start: 20121025, end: 20121025
  2. LICE COMBO 866/9K1/0N8 PK 173 [Suspect]
     Indication: LICE INFESTATION
     Dosage: ONE APPLICATION, SINGLE
     Route: 061
     Dates: start: 20121025, end: 20121025

REACTIONS (9)
  - Eye burns [Recovering/Resolving]
  - Eye swelling [Recovering/Resolving]
  - Photophobia [Recovering/Resolving]
  - Ocular hyperaemia [Recovering/Resolving]
  - Eye pain [Recovering/Resolving]
  - Eye irritation [Recovering/Resolving]
  - Accidental exposure to product [Recovered/Resolved]
  - Drug administered to patient of inappropriate age [Recovered/Resolved]
  - Incorrect drug administration duration [Recovered/Resolved]
